FAERS Safety Report 12328636 (Version 1)
Quarter: 2016Q2

REPORT INFORMATION
  Report Type: Spontaneous
  Country: US (occurrence: US)
  Receive Date: 20160503
  Receipt Date: 20160503
  Transmission Date: 20160815
  Serious: No
  Sender: FDA-Public Use
  Company Number: US-BEH-2015049777

PATIENT
  Sex: Male
  Weight: 111.1 kg

DRUGS (12)
  1. VENTOLIN [Concomitant]
     Active Substance: ALBUTEROL SULFATE
     Dosage: VENTOLIN HFA 90MCG, 1 DOSE DAILY
     Route: 048
  2. VASCEPA [Concomitant]
     Active Substance: ICOSAPENT ETHYL
     Dosage: 1 G BID
     Route: 048
  3. HIZENTRA [Suspect]
     Active Substance: HUMAN IMMUNOGLOBULIN G
     Dosage: 4GM 20 ML VIAL, 12 GM WEEKLY
     Route: 058
  4. LEVOCETIRIZINE DIHYDROCHLORIDE. [Concomitant]
     Active Substance: LEVOCETIRIZINE DIHYDROCHLORIDE
     Dosage: 1 DOSE DAILY, UD
  5. HIZENTRA [Suspect]
     Active Substance: HUMAN IMMUNOGLOBULIN G
     Indication: IMMUNODEFICIENCY COMMON VARIABLE
     Route: 058
  6. DIPHENHYDRAMINE. [Concomitant]
     Active Substance: DIPHENHYDRAMINE
     Dosage: 25 MG PRN ANA
     Route: 048
  7. EPINEPHRINE. [Concomitant]
     Active Substance: EPINEPHRINE
     Dosage: 0.3 MG PRN ANA
     Route: 030
  8. CELEXA [Concomitant]
     Active Substance: CITALOPRAM HYDROBROMIDE
     Route: 048
  9. L-M-X [Concomitant]
     Dosage: 4% PRIOR
     Route: 061
  10. TRICOR [Concomitant]
     Active Substance: FENOFIBRATE
     Dosage: 145 MG DAILY
     Route: 048
  11. DULERA 200-5 MCG [Concomitant]
     Dosage: 200-5 MCG, 2 INH AM AND PM
     Route: 048
  12. SINGULAIR [Concomitant]
     Active Substance: MONTELUKAST SODIUM
     Dosage: 10 MG DAILY
     Route: 048

REACTIONS (1)
  - Headache [Unknown]
